FAERS Safety Report 13968394 (Version 1)
Quarter: 2017Q3

REPORT INFORMATION
  Report Type: Spontaneous
  Country: ZA (occurrence: ZA)
  Receive Date: 20170914
  Receipt Date: 20170914
  Transmission Date: 20171128
  Serious: Yes (Hospitalization, Other)
  Sender: FDA-Public Use
  Company Number: ZA-JNJFOC-20170906241

PATIENT
  Sex: Male

DRUGS (2)
  1. PREXUM [Concomitant]
     Active Substance: PERINDOPRIL ERBUMINE
     Route: 065
  2. XARELTO [Suspect]
     Active Substance: RIVAROXABAN
     Indication: EMBOLISM VENOUS
     Route: 048

REACTIONS (2)
  - Pulmonary embolism [Unknown]
  - Diverticulum intestinal haemorrhagic [Unknown]
